FAERS Safety Report 8417188-8 (Version None)
Quarter: 2012Q2

REPORT INFORMATION
  Report Type: 
  Country: None (occurrence: None)
  Receive Date: 20120606
  Receipt Date: 20120531
  Transmission Date: 20120825
  Serious: Yes (Disabling)
  Sender: FDA-Public Use
  Company Number: FR-ACTELION-A-CH2010-40570

PATIENT
  Sex: Male
  Weight: 93 kg

DRUGS (5)
  1. ZAVESCA [Suspect]
     Indication: GAUCHER'S DISEASE
     Dosage: 100 MG, OD
     Route: 048
     Dates: start: 20100501, end: 20100601
  2. ZAVESCA [Suspect]
     Dosage: 100 MG, TID
     Route: 048
     Dates: start: 20100602, end: 20100901
  3. PAROXETINE HYDROCHLORIDE [Concomitant]
  4. CLONAZEPAM [Concomitant]
  5. EBASTINE [Concomitant]

REACTIONS (6)
  - DEPRESSION [None]
  - MOOD ALTERED [None]
  - WEIGHT DECREASED [None]
  - PARKINSONISM [None]
  - TREMOR [None]
  - CONSTIPATION [None]
